FAERS Safety Report 8019722-9 (Version None)
Quarter: 2012Q1

REPORT INFORMATION
  Report Type: 
  Country: None (occurrence: None)
  Receive Date: 20120103
  Receipt Date: 20111221
  Transmission Date: 20120608
  Serious: Yes (Other)
  Sender: FDA-Public Use
  Company Number: JP-GLAXOSMITHKLINE-B0762462A

PATIENT
  Sex: Female

DRUGS (7)
  1. RABEPRAZOLE SODIUM [Concomitant]
     Dosage: 10MG PER DAY
     Route: 048
  2. ACETAMINOPHEN [Concomitant]
     Route: 048
  3. ZOPICOOL [Concomitant]
     Route: 048
  4. ZOLOFT [Concomitant]
     Dosage: 75MG PER DAY
     Route: 048
  5. SEROQUEL [Concomitant]
     Dosage: 75MG PER DAY
     Route: 048
  6. BEZATATE [Concomitant]
     Dosage: 400MG PER DAY
     Route: 048
  7. LAMICTAL [Suspect]
     Indication: BORDERLINE PERSONALITY DISORDER
     Route: 048
     Dates: start: 20110830, end: 20111016

REACTIONS (10)
  - CHEILITIS [None]
  - ASPARTATE AMINOTRANSFERASE INCREASED [None]
  - STOMATITIS [None]
  - RASH [None]
  - ALANINE AMINOTRANSFERASE INCREASED [None]
  - ECZEMA [None]
  - EOSINOPHIL PERCENTAGE INCREASED [None]
  - PYREXIA [None]
  - DRUG ERUPTION [None]
  - BLOOD LACTATE DEHYDROGENASE INCREASED [None]
